FAERS Safety Report 5119301-7 (Version None)
Quarter: 2006Q3

REPORT INFORMATION
  Report Type: 
  Country: None (occurrence: None)
  Receive Date: 20060929
  Receipt Date: 20060918
  Transmission Date: 20061208
  Serious: Yes (Other)
  Sender: FDA-Public Use
  Company Number: SPVI-2006-00844

PATIENT
  Age: 22 Year
  Sex: Female
  Weight: 55.3 kg

DRUGS (4)
  1. CARBATROL [Suspect]
     Indication: CONVULSION
     Dosage: 400  MG DAILY; 600 MG DAILY, 800 MG DAILY
     Dates: start: 20040801, end: 20060430
  2. CARBATROL [Suspect]
     Indication: CONVULSION
     Dosage: 400  MG DAILY; 600 MG DAILY, 800 MG DAILY
     Dates: start: 20060430, end: 20060710
  3. CARBATROL [Suspect]
     Indication: CONVULSION
     Dosage: 400  MG DAILY; 600 MG DAILY, 800 MG DAILY
     Dates: start: 20060501
  4. MIDOL (ACETYLSALICYLIC ACID, CAFFEINE CINNAMEDRINE) [Concomitant]

REACTIONS (4)
  - ANTICONVULSANT DRUG LEVEL BELOW THERAPEUTIC [None]
  - DIARRHOEA [None]
  - FALL [None]
  - GRAND MAL CONVULSION [None]
